FAERS Safety Report 7373608-1 (Version None)
Quarter: 2011Q1

REPORT INFORMATION
  Report Type: 
  Country: None (occurrence: None)
  Receive Date: 20110325
  Receipt Date: 20110315
  Transmission Date: 20110831
  Serious: Yes (Other)
  Sender: FDA-Public Use
  Company Number: US-BAYER-2011-024047

PATIENT
  Sex: Female

DRUGS (1)
  1. YAZ [Suspect]
     Indication: PRODUCT USED FOR UNKNOWN INDICATION
     Dosage: UNK
     Route: 048
     Dates: start: 20090701, end: 20090801

REACTIONS (9)
  - THYROID DISORDER [None]
  - ANXIETY [None]
  - ADRENAL DISORDER [None]
  - DEPRESSION [None]
  - HYPOGLYCAEMIA [None]
  - MIGRAINE [None]
  - PALPITATIONS [None]
  - CHEST PAIN [None]
  - PANIC ATTACK [None]
